FAERS Safety Report 7933702-0 (Version None)
Quarter: 2011Q4

REPORT INFORMATION
  Report Type: 
  Country: None (occurrence: None)
  Receive Date: 20111118
  Receipt Date: 20111108
  Transmission Date: 20120403
  Serious: Yes (Other)
  Sender: FDA-Public Use
  Company Number: 1105006

PATIENT
  Age: 57 Year
  Sex: Female

DRUGS (8)
  1. VINCRISTINE SULFATE [Concomitant]
  2. PROCARBAZINE HYDROCHLORIDE [Concomitant]
  3. ETOPOSIDE [Concomitant]
  4. METHOTREXATE [Suspect]
     Indication: CENTRAL NERVOUS SYSTEM LYMPHOMA
     Dosage: 400 MCG TWICE WEEKLY, INTRAOCULAR ; WEEKLY INTRAOCULAR ; MONTHLY INTRAOCULAR
     Route: 031
  5. METHOTREXATE [Suspect]
     Indication: CENTRAL NERVOUS SYSTEM LYMPHOMA
     Dosage: 400 MCG TWICE WEEKLY, INTRAOCULAR ; WEEKLY INTRAOCULAR ; MONTHLY INTRAOCULAR
     Route: 031
  6. METHOTREXATE [Suspect]
     Indication: CENTRAL NERVOUS SYSTEM LYMPHOMA
     Dosage: 400 MCG TWICE WEEKLY, INTRAOCULAR ; WEEKLY INTRAOCULAR ; MONTHLY INTRAOCULAR
     Route: 031
  7. CYCLOPHOSPHAMIDE [Concomitant]
  8. CYTARABINE [Concomitant]

REACTIONS (8)
  - VISUAL ACUITY REDUCED [None]
  - INTRAOCULAR PRESSURE INCREASED [None]
  - RETINAL PIGMENT EPITHELIOPATHY [None]
  - CATARACT [None]
  - CORNEAL DISORDER [None]
  - VITREOUS HAEMORRHAGE [None]
  - MACULOPATHY [None]
  - DISEASE PROGRESSION [None]
